FAERS Safety Report 9395994 (Version 1)
Quarter: 2013Q3

REPORT INFORMATION
  Report Type: Spontaneous
  Country: GB (occurrence: None)
  Receive Date: 20130708
  Receipt Date: 20130708
  Transmission Date: 20140516
  Serious: Yes (Life-Threatening, Hospitalization)
  Sender: FDA-Public Use
  Company Number: 2013P1010802

PATIENT
  Age: 91 Year
  Sex: 0

DRUGS (18)
  1. DOXYCYCLINE [Suspect]
     Indication: CHRONIC OBSTRUCTIVE PULMONARY DISEASE
     Route: 048
     Dates: start: 20100804
  2. LEVOFLOXACIN [Suspect]
     Indication: RENAL FAILURE ACUTE
     Route: 048
     Dates: start: 20110130, end: 20110206
  3. LEVOFLOXACIN [Suspect]
     Indication: PNEUMONIA
     Route: 048
     Dates: start: 20110130, end: 20110206
  4. CIPROFLOXACIN [Suspect]
     Indication: UROSEPSIS
     Route: 042
     Dates: start: 20110324
  5. BENZYLPENICILLIN [Suspect]
     Indication: PNEUMONIA
     Route: 042
     Dates: start: 20110130
  6. ERTAPENEM [Suspect]
     Indication: URINARY TRACT INFECTION
     Route: 042
     Dates: start: 20110330, end: 20110331
  7. UNIPHYLLIN (THEOPHYLLINE-THEOPHYLLINE ANHYDROUS) [Concomitant]
  8. THIAMINE [Concomitant]
  9. VITAMIN B COMPOUND (NICOTINAMIDE - RIBOFLAVINE- THIAMINE HYDROCHLORIDE) [Concomitant]
  10. ADCAL-D3 (CALCIUM CARBONATE - COLECALCIFEROL) [Concomitant]
  11. IPRATROPIUM BROMIDE [Concomitant]
  12. SALBUTAMOL [Concomitant]
  13. PARACETAMOL [Concomitant]
  14. QUETIAPINE [Concomitant]
  15. ATORVASTATIN [Concomitant]
  16. ASPIRIN [Concomitant]
  17. SENNA [Concomitant]
  18. BUMETANIDE [Concomitant]

REACTIONS (9)
  - Pneumonia [None]
  - Urosepsis [None]
  - Urinary tract infection [None]
  - Clostridium test positive [None]
  - Confusional state [None]
  - Dysuria [None]
  - Hypotension [None]
  - Diarrhoea [None]
  - Escherichia infection [None]
